FAERS Safety Report 20336814 (Version 1)
Quarter: 2022Q1

REPORT INFORMATION
  Report Type: Spontaneous
  Country: US (occurrence: US)
  Receive Date: 20220114
  Receipt Date: 20220114
  Transmission Date: 20220423
  Serious: Yes (Other)
  Sender: FDA-Public Use
  Company Number: US-UCBSA-2022000502

PATIENT
  Age: 30 Year
  Sex: Male

DRUGS (1)
  1. NAYZILAM [Suspect]
     Active Substance: MIDAZOLAM
     Indication: Seizure cluster
     Dosage: 5MG AS NEEDED

REACTIONS (5)
  - Panic attack [Unknown]
  - Anxiety [Unknown]
  - Balance disorder [Unknown]
  - Decreased appetite [Unknown]
  - Vomiting [Unknown]
